FAERS Safety Report 21244415 (Version 3)
Quarter: 2022Q3

REPORT INFORMATION
  Report Type: Other
  Country: JP (occurrence: None)
  Receive Date: 20220823
  Receipt Date: 20220907
  Transmission Date: 20221027
  Serious: Yes (Hospitalization)
  Sender: FDA-Public Use
  Company Number: JP-ROCHE-3165471

PATIENT
  Age: 70 Year
  Sex: Male

DRUGS (6)
  1. ATEZOLIZUMAB [Suspect]
     Active Substance: ATEZOLIZUMAB
     Indication: Hepatocellular carcinoma
     Route: 065
     Dates: start: 202006
  2. BEVACIZUMAB [Suspect]
     Active Substance: BEVACIZUMAB
     Indication: Hepatocellular carcinoma
     Route: 065
     Dates: start: 202006
  3. LENVATINIB [Concomitant]
     Active Substance: LENVATINIB
     Indication: Varices oesophageal
  4. RAMUCIRUMAB [Concomitant]
     Active Substance: RAMUCIRUMAB
     Indication: Hepatocellular carcinoma
     Dosage: FOR THREE MONTHS
  5. ENTECAVIR [Concomitant]
     Active Substance: ENTECAVIR
     Dosage: ONE
     Route: 048
  6. PREDONINE [Concomitant]
     Active Substance: PREDNISOLONE
     Dosage: 1 MG/KG/DAY
     Route: 048

REACTIONS (2)
  - Immune thrombocytopenia [Recovering/Resolving]
  - Skin disorder [Recovered/Resolved]
